FAERS Safety Report 5625290-9 (Version None)
Quarter: 2008Q1

REPORT INFORMATION
  Report Type: 
  Country: None (occurrence: None)
  Receive Date: 20080208
  Receipt Date: 20080125
  Transmission Date: 20080703
  Serious: Yes (Death)
  Sender: FDA-Public Use
  Company Number: 070924-0000946

PATIENT
  Age: 10 Month

DRUGS (3)
  1. COSMEGEN [Suspect]
     Indication: DRUG THERAPY
  2. COSMEGEN [Suspect]
     Indication: NEPHROBLASTOMA
  3. VINCRISTINE [Suspect]
     Indication: NEPHROBLASTOMA

REACTIONS (1)
  - MECHANICAL ILEUS [None]
